FAERS Safety Report 9452496 (Version 3)
Quarter: 2013Q4

REPORT INFORMATION
  Report Type: Spontaneous
  Country: US (occurrence: US)
  Receive Date: 20130812
  Receipt Date: 20131009
  Transmission Date: 20140711
  Serious: No
  Sender: FDA-Public Use
  Company Number: US-PFIZER INC-2013230616

PATIENT
  Age: 74 Year
  Sex: Female
  Weight: 57 kg

DRUGS (8)
  1. XELJANZ [Suspect]
     Indication: RHEUMATOID ARTHRITIS
     Dosage: UNK
     Dates: start: 20130704, end: 201307
  2. XELJANZ [Suspect]
     Dosage: 5 MG, 2X/DAY
     Route: 048
  3. RITUXIMAB [Suspect]
     Indication: RHEUMATOID ARTHRITIS
     Dosage: 1000 MG, 1X/DAY
     Route: 042
  4. ORENCIA [Concomitant]
     Indication: RHEUMATOID ARTHRITIS
     Dosage: 750 MG, ONCE
     Dates: start: 2011, end: 2011
  5. RITUXAN [Concomitant]
     Indication: RHEUMATOID ARTHRITIS
     Dosage: UNK
     Dates: start: 200911, end: 200912
  6. SYNTHROID [Concomitant]
     Indication: THYROID DISORDER
     Dosage: 45 UG, 1X/DAY
  7. VASOTEC [Concomitant]
     Indication: BLOOD PRESSURE ABNORMAL
     Dosage: 20 MG, 2X/DAY
  8. ZOCOR [Concomitant]
     Indication: BLOOD CHOLESTEROL ABNORMAL
     Dosage: 40 MG, 1X/DAY

REACTIONS (4)
  - Activities of daily living impaired [Unknown]
  - Pain [Unknown]
  - Feeling abnormal [Unknown]
  - Pain in extremity [Recovered/Resolved]
